FAERS Safety Report 15632431 (Version 1)
Quarter: 2018Q4

REPORT INFORMATION
  Report Type: Spontaneous
  Country: ZA (occurrence: ZA)
  Receive Date: 20181119
  Receipt Date: 20181119
  Transmission Date: 20190205
  Serious: Yes (Disabling, Other)
  Sender: FDA-Public Use
  Company Number: IND-ZA-009507513-1810ZAF000674

PATIENT
  Age: 83 Year
  Sex: Female
  Weight: 60 kg

DRUGS (4)
  1. PERINDOPRIL [Concomitant]
     Active Substance: PERINDOPRIL
     Indication: HYPERTENSION
     Dosage: 4 MILLIGRAM
     Route: 048
     Dates: start: 2013
  2. ECOTRIN [Concomitant]
     Active Substance: ASPIRIN
     Indication: TRANSIENT ISCHAEMIC ATTACK
     Dosage: 4 DOSAGE FORM
     Route: 048
     Dates: start: 2013
  3. NATRILIX [Concomitant]
     Active Substance: INDAPAMIDE
     Indication: HYPERTENSION
     Dosage: 4 DOSAGE FORM
     Route: 048
     Dates: start: 2011
  4. ARCOXIA [Suspect]
     Active Substance: ETORICOXIB
     Indication: PAIN
     Dosage: 4 DOSAGE FORM, QD
     Route: 048
     Dates: start: 20160313, end: 20160316

REACTIONS (4)
  - Overdose [Unknown]
  - Angioedema [Recovered/Resolved with Sequelae]
  - Asthenia [Unknown]
  - Hypotension [Recovered/Resolved with Sequelae]

NARRATIVE: CASE EVENT DATE: 201603
